FAERS Safety Report 17643452 (Version 1)
Quarter: 2020Q2

REPORT INFORMATION
  Report Type: Spontaneous
  Country: US (occurrence: US)
  Receive Date: 20200407
  Receipt Date: 20200407
  Transmission Date: 20200713
  Serious: Yes (Hospitalization, Disabling)
  Sender: FDA-Public Use
  Company Number: None

PATIENT
  Age: 67 Year
  Sex: Female
  Weight: 87.09 kg

DRUGS (21)
  1. MULTIHANCE [Suspect]
     Active Substance: GADOBENATE DIMEGLUMINE
  2. HYDROCODONE BITARTRATE AND ACETAMINOPHEN [Concomitant]
     Active Substance: ACETAMINOPHEN\HYDROCODONE BITARTRATE
  3. HEARING AIDES [Concomitant]
  4. CYMBALTA [Concomitant]
     Active Substance: DULOXETINE HYDROCHLORIDE
  5. COMPLETE MINERAL COMPLEX [Concomitant]
  6. LYRICA [Concomitant]
     Active Substance: PREGABALIN
  7. LOVASTATIN. [Concomitant]
     Active Substance: LOVASTATIN
  8. CELECOBIX [Concomitant]
  9. TIZANIDINE. [Concomitant]
     Active Substance: TIZANIDINE
  10. OXYCONTIN/APAP [Concomitant]
  11. FORTEO [Concomitant]
     Active Substance: TERIPARATIDE
  12. CALCIUM CITRATE [Concomitant]
     Active Substance: CALCIUM CITRATE
  13. LIDOCAINE  PATCHES [Concomitant]
     Active Substance: LIDOCAINE
  14. ALPHA LIPOIC ACID [Concomitant]
     Active Substance: .ALPHA.-LIPOIC ACID
  15. VENTOLIN [Concomitant]
     Active Substance: ALBUTEROL SULFATE
  16. DOCUSATE SODIUM. [Concomitant]
     Active Substance: DOCUSATE SODIUM
  17. PEPCID [Concomitant]
     Active Substance: FAMOTIDINE
  18. GABAPENTIN. [Concomitant]
     Active Substance: GABAPENTIN
  19. VITAMIN D3 [Concomitant]
     Active Substance: CHOLECALCIFEROL
  20. LIPOSOMAL GLUTATHIONE [Concomitant]
  21. MITOCHONDRIAL NRG [Concomitant]

REACTIONS (11)
  - Nausea [None]
  - Ocular hyperaemia [None]
  - Contrast media toxicity [None]
  - Dysgeusia [None]
  - Pain [None]
  - Burning sensation [None]
  - Hyperhidrosis [None]
  - Palpitations [None]
  - Respiratory distress [None]
  - Retching [None]
  - Eye swelling [None]

NARRATIVE: CASE EVENT DATE: 20191020
